FAERS Safety Report 6890240-4 (Version None)
Quarter: 2010Q3

REPORT INFORMATION
  Report Type: 
  Country: None (occurrence: None)
  Receive Date: 20100730
  Receipt Date: 20080910
  Transmission Date: 20110219
  Serious: No
  Sender: FDA-Public Use
  Company Number: US-PFIZER INC-2008076484

PATIENT
  Sex: Female
  Weight: 75 kg

DRUGS (4)
  1. LIPITOR [Suspect]
     Dates: end: 20080701
  2. MULTI-VITAMINS [Concomitant]
  3. LYSINE [Concomitant]
  4. FISH OIL [Concomitant]

REACTIONS (4)
  - ARTHRALGIA [None]
  - INSOMNIA [None]
  - MYALGIA [None]
  - PAIN IN EXTREMITY [None]
